FAERS Safety Report 8288611-7 (Version None)
Quarter: 2012Q2

REPORT INFORMATION
  Report Type: 
  Country: None (occurrence: None)
  Receive Date: 20120416
  Receipt Date: 20120410
  Transmission Date: 20120825
  Serious: Yes (Hospitalization)
  Sender: FDA-Public Use
  Company Number: US-ABBOTT-12P-163-0924352-00

PATIENT
  Sex: Female
  Weight: 50.848 kg

DRUGS (5)
  1. PENTASA [Concomitant]
     Indication: CROHN'S DISEASE
  2. TYLENOL (CAPLET) [Concomitant]
     Indication: PAIN
  3. HUMIRA [Suspect]
     Indication: CROHN'S DISEASE
     Dates: start: 20110101
  4. ENTOCORT EC [Concomitant]
     Indication: CROHN'S DISEASE
  5. STEROIDS [Concomitant]
     Indication: CROHN'S DISEASE

REACTIONS (13)
  - TACHYCARDIA [None]
  - CARDIAC DISORDER [None]
  - DIARRHOEA [None]
  - DEVICE MALFUNCTION [None]
  - WEIGHT DECREASED [None]
  - EJECTION FRACTION ABNORMAL [None]
  - PULMONARY OEDEMA [None]
  - FLUID OVERLOAD [None]
  - OXYGEN SATURATION DECREASED [None]
  - DEHYDRATION [None]
  - BLOOD ALBUMIN DECREASED [None]
  - VOMITING [None]
  - HYPOXIA [None]
